FAERS Safety Report 12920015 (Version 1)
Quarter: 2016Q4

REPORT INFORMATION
  Report Type: Spontaneous
  Country: US (occurrence: US)
  Receive Date: 20161104
  Receipt Date: 20161104
  Transmission Date: 20170207
  Serious: Yes (Disabling, Other)
  Sender: FDA-Public Use
  Company Number: None

PATIENT
  Age: 46 Year
  Sex: Male
  Weight: 81 kg

DRUGS (10)
  1. DEPAKOTE [Concomitant]
     Active Substance: DIVALPROEX SODIUM
  2. DEXTROAMPHETINE [Concomitant]
  3. HYDROCHLOROTHYCIDE [Concomitant]
  4. PRIMIDONE. [Suspect]
     Active Substance: PRIMIDONE
     Indication: HIV INFECTION
     Dates: start: 20161001, end: 20161102
  5. PRILOSEC [Concomitant]
     Active Substance: OMEPRAZOLE MAGNESIUM
  6. PRIMIDONE. [Suspect]
     Active Substance: PRIMIDONE
     Indication: DEPRESSION
     Dates: start: 20161001, end: 20161102
  7. PRIMIDONE. [Suspect]
     Active Substance: PRIMIDONE
     Indication: ATTENTION DEFICIT/HYPERACTIVITY DISORDER
     Dates: start: 20161001, end: 20161102
  8. PRIMIDONE. [Suspect]
     Active Substance: PRIMIDONE
     Indication: GASTROOESOPHAGEAL REFLUX DISEASE
     Dates: start: 20161001, end: 20161102
  9. ZOLOFT [Concomitant]
     Active Substance: SERTRALINE HYDROCHLORIDE
  10. STRIBILD [Concomitant]
     Active Substance: COBICISTAT\ELVITEGRAVIR\EMTRICITABINE\TENOFOVIR DISOPROXIL FUMARATE
     Dates: start: 20161001, end: 20161102

REACTIONS (1)
  - Suicidal ideation [None]

NARRATIVE: CASE EVENT DATE: 20160331
